FAERS Safety Report 7000527-2 (Version None)
Quarter: 2010Q3

REPORT INFORMATION
  Report Type: 
  Country: None (occurrence: None)
  Receive Date: 20100920
  Receipt Date: 20091112
  Transmission Date: 20110219
  Serious: No
  Sender: FDA-Public Use
  Company Number: US-ASTRAZENECA-2009UW03713

PATIENT
  Sex: Female
  Weight: 94.3 kg

DRUGS (6)
  1. SEROQUEL [Suspect]
     Indication: BOWEL MOVEMENT IRREGULARITY
     Route: 048
     Dates: start: 20031001, end: 20050301
  2. SEROQUEL [Suspect]
     Indication: SLEEP DISORDER
     Route: 048
     Dates: start: 20031001, end: 20050301
  3. SEROQUEL [Suspect]
     Indication: DEPRESSION
     Route: 048
     Dates: start: 20031001, end: 20050301
  4. RISPERDAL [Concomitant]
     Dates: start: 19951201, end: 19971001
  5. THORAZINE [Concomitant]
     Dates: start: 19930601, end: 19951201
  6. ZYPREXA [Concomitant]
     Dates: start: 19971101, end: 20020101

REACTIONS (2)
  - RENAL PAIN [None]
  - TYPE 2 DIABETES MELLITUS [None]
